FAERS Safety Report 10056830 (Version 2)
Quarter: 2014Q2

REPORT INFORMATION
  Report Type: Report from Study
  Country: US (occurrence: US)
  Receive Date: 20140403
  Receipt Date: 20140428
  Transmission Date: 20141212
  Serious: Yes (Life-Threatening, Hospitalization)
  Sender: FDA-Public Use
  Company Number: US-JNJFOC-20140401711

PATIENT
  Age: 16 Year
  Sex: Female
  Weight: 51.3 kg

DRUGS (6)
  1. REMICADE [Suspect]
     Indication: CROHN^S DISEASE
     Route: 042
     Dates: start: 20111215
  2. IRON [Concomitant]
     Route: 065
  3. VITAMIN D [Concomitant]
     Route: 065
  4. ZINC [Concomitant]
     Route: 065
  5. MULTIVITAMINS [Concomitant]
     Route: 065
  6. BENADRYL [Concomitant]
     Route: 065

REACTIONS (1)
  - Suicidal ideation [Recovered/Resolved]
